FAERS Safety Report 15892863 (Version 1)
Quarter: 2019Q1

REPORT INFORMATION
  Report Type: Report from Study
  Country: US (occurrence: US)
  Receive Date: 20190130
  Receipt Date: 20190130
  Transmission Date: 20190417
  Serious: No
  Sender: FDA-Public Use
  Company Number: US-EXELIXIS-CABO-18015653

PATIENT
  Sex: Female

DRUGS (14)
  1. XANAX [Concomitant]
     Active Substance: ALPRAZOLAM
  2. AMITRIPTYLINE [Concomitant]
     Active Substance: AMITRIPTYLINE
  3. COMETRIQ [Suspect]
     Active Substance: CABOZANTINIB S-MALATE
     Indication: GASTRIC CANCER
     Dosage: 80 MG, QOD
     Route: 048
     Dates: start: 20160630
  4. PRILOSEC [Concomitant]
     Active Substance: OMEPRAZOLE MAGNESIUM
  5. COMETRIQ [Suspect]
     Active Substance: CABOZANTINIB S-MALATE
     Indication: THYROID CANCER
     Dosage: 140 MG, QD
     Route: 048
     Dates: start: 20141020, end: 20141026
  6. AMLODIPINE [Concomitant]
     Active Substance: AMLODIPINE BESYLATE
  7. CYPROHEPTADINE. [Concomitant]
     Active Substance: CYPROHEPTADINE
  8. VITAMIN B12 [Concomitant]
     Active Substance: CYANOCOBALAMIN
  9. PROBIOTIC [Concomitant]
     Active Substance: PROBIOTICS NOS
  10. LOSARTAN POTASSIUM. [Concomitant]
     Active Substance: LOSARTAN POTASSIUM
  11. LEVOTHYROXINE. [Concomitant]
     Active Substance: LEVOTHYROXINE
  12. NORVASC [Concomitant]
     Active Substance: AMLODIPINE BESYLATE
  13. NAPROXEN. [Concomitant]
     Active Substance: NAPROXEN
  14. CARAFATE [Concomitant]
     Active Substance: SUCRALFATE

REACTIONS (3)
  - Sleep apnoea syndrome [Unknown]
  - Chronic obstructive pulmonary disease [Unknown]
  - Pharynx radiation injury [Unknown]
